FAERS Safety Report 7251504-8 (Version None)
Quarter: 2011Q1

REPORT INFORMATION
  Report Type: 
  Country: None (occurrence: None)
  Receive Date: 20110128
  Receipt Date: 20110118
  Transmission Date: 20110831
  Serious: Yes (Hospitalization)
  Sender: FDA-Public Use
  Company Number: NL-GENENTECH-310657

PATIENT
  Sex: Male
  Weight: 106 kg

DRUGS (18)
  1. G-CSF [Suspect]
     Dosage: 6 MG, UNK
     Route: 058
     Dates: start: 20101113
  2. CARVEDILOL [Concomitant]
     Indication: CARDIAC FAILURE
     Dosage: UNK
     Route: 048
  3. RITUXIMAB [Suspect]
     Indication: DIFFUSE LARGE B-CELL LYMPHOMA
     Dosage: 750 MG, UNK
     Route: 042
     Dates: start: 20101029
  4. CYCLOPHOSPHAMIDE [Suspect]
     Indication: DIFFUSE LARGE B-CELL LYMPHOMA
     Dosage: 1700 MG, UNK
     Route: 042
     Dates: start: 20101029
  5. VINCRISTINE [Suspect]
     Dosage: 2 MG, UNK
     Route: 042
     Dates: start: 20101112
  6. METFORMIN [Concomitant]
     Indication: DIABETES MELLITUS
     Dosage: UNK
     Route: 048
     Dates: end: 20101124
  7. RITUXIMAB [Suspect]
     Dosage: 750 MG, UNK
     Route: 042
     Dates: start: 20101112
  8. CYCLOPHOSPHAMIDE [Suspect]
     Dosage: 1700 MG, UNK
     Route: 042
     Dates: start: 20101112
  9. FUROSEMIDE [Concomitant]
     Indication: CARDIAC FAILURE
     Dosage: UNK
     Route: 048
  10. DOXORUBICIN [Suspect]
     Indication: DIFFUSE LARGE B-CELL LYMPHOMA
     Dosage: 115 MG, UNK
     Route: 042
     Dates: start: 20101029
  11. VINCRISTINE [Suspect]
     Indication: DIFFUSE LARGE B-CELL LYMPHOMA
     Dosage: 2 MG, UNK
     Route: 042
     Dates: start: 20101029
  12. PREDNISONE [Suspect]
     Indication: DIFFUSE LARGE B-CELL LYMPHOMA
     Dosage: 1000 MG, UNK
     Route: 048
     Dates: start: 20101029
  13. DOXORUBICIN [Suspect]
     Dosage: 115 MG, UNK
     Route: 042
     Dates: start: 20101112
  14. PREDNISONE [Suspect]
     Dosage: 100 MG, UNK
     Route: 048
     Dates: start: 20101112
  15. G-CSF [Suspect]
     Indication: DIFFUSE LARGE B-CELL LYMPHOMA
     Dosage: 6 MG, UNK
     Route: 058
     Dates: start: 20101101
  16. ACENOCOUMAROL [Suspect]
     Indication: CARDIAC FAILURE
     Dosage: UNK
     Route: 048
  17. SPIRONOLACTONE [Concomitant]
     Indication: CARDIAC FAILURE
     Dosage: UNK
     Route: 048
  18. LANOXIN [Concomitant]
     Indication: CARDIAC FAILURE
     Dosage: UNK
     Route: 048

REACTIONS (1)
  - DUODENITIS [None]
